FAERS Safety Report 7148630-0 (Version None)
Quarter: 2010Q4

REPORT INFORMATION
  Report Type: 
  Country: None (occurrence: None)
  Receive Date: 20101122
  Receipt Date: 20101118
  Transmission Date: 20110411
  Serious: Yes (Death, Other)
  Sender: FDA-Public Use
  Company Number: 2008SP013161

PATIENT
  Age: 12 Year
  Sex: Female
  Weight: 36 kg

DRUGS (16)
  1. TEMODAL [Suspect]
     Indication: ANAPLASTIC ASTROCYTOMA
     Dosage: SEE IMAGE
     Route: 048
     Dates: start: 20070725, end: 20070904
  2. TEMODAL [Suspect]
     Indication: ANAPLASTIC ASTROCYTOMA
     Dosage: SEE IMAGE
     Route: 048
     Dates: start: 20071013, end: 20071017
  3. TEMODAL [Suspect]
     Indication: ANAPLASTIC ASTROCYTOMA
     Dosage: SEE IMAGE
     Route: 048
     Dates: start: 20071113, end: 20071117
  4. TEMODAL [Suspect]
     Indication: ANAPLASTIC ASTROCYTOMA
     Dosage: SEE IMAGE
     Route: 048
     Dates: start: 20071215, end: 20071219
  5. TEMODAL [Suspect]
     Indication: ANAPLASTIC ASTROCYTOMA
     Dosage: SEE IMAGE
     Route: 048
     Dates: start: 20080119, end: 20080123
  6. TEMODAL [Suspect]
     Indication: ANAPLASTIC ASTROCYTOMA
     Dosage: SEE IMAGE
     Route: 048
     Dates: start: 20080223, end: 20080227
  7. TEMODAL [Suspect]
     Indication: ANAPLASTIC ASTROCYTOMA
     Dosage: SEE IMAGE
     Route: 048
     Dates: start: 20080402, end: 20080406
  8. TEMODAL [Suspect]
     Indication: ANAPLASTIC ASTROCYTOMA
     Dosage: SEE IMAGE
     Route: 048
     Dates: start: 20080503, end: 20080508
  9. TEMODAL [Suspect]
     Indication: ANAPLASTIC ASTROCYTOMA
     Dosage: SEE IMAGE
     Route: 048
     Dates: start: 20080614, end: 20080618
  10. TEMODAL [Suspect]
     Indication: ANAPLASTIC ASTROCYTOMA
     Dosage: SEE IMAGE
     Route: 048
     Dates: start: 20080719, end: 20080723
  11. DEPAKENE [Suspect]
     Indication: CONVULSION PROPHYLAXIS
     Dosage: PO
     Route: 048
  12. BAKTAR [Concomitant]
  13. NAVOBAN [Concomitant]
  14. MAGMITT [Concomitant]
  15. CALONAL [Concomitant]
  16. FUNGIZONE [Concomitant]

REACTIONS (6)
  - ACUTE LYMPHOCYTIC LEUKAEMIA [None]
  - ALTERED STATE OF CONSCIOUSNESS [None]
  - CEREBRAL ATROPHY [None]
  - CONVULSION [None]
  - HYDROCEPHALUS [None]
  - PNEUMONIA [None]
